FAERS Safety Report 17610842 (Version 2)
Quarter: 2020Q3

REPORT INFORMATION
  Report Type: Spontaneous
  Country: AU (occurrence: AU)
  Receive Date: 20200401
  Receipt Date: 20200715
  Transmission Date: 20201102
  Serious: Yes (Hospitalization, Other)
  Sender: FDA-Public Use
  Company Number: AU-ROCHE-2572545

PATIENT
  Sex: Female

DRUGS (7)
  1. ZOLADEX [Suspect]
     Active Substance: GOSERELIN ACETATE
     Indication: BREAST CANCER METASTATIC
     Route: 065
  2. RIBOCICLIB. [Suspect]
     Active Substance: RIBOCICLIB
     Indication: BREAST CANCER METASTATIC
     Dosage: DRUG WITHDRAWN
     Route: 065
  3. VALIUM [Suspect]
     Active Substance: DIAZEPAM
     Indication: ANXIETY
     Route: 065
  4. FEMARA [Suspect]
     Active Substance: LETROZOLE
     Indication: BREAST CANCER METASTATIC
     Route: 065
  5. TARGIN [Suspect]
     Active Substance: NALOXONE HYDROCHLORIDE\OXYCODONE HYDROCHLORIDE
     Indication: PRODUCT USED FOR UNKNOWN INDICATION
     Route: 065
  6. OLAPARIB. [Suspect]
     Active Substance: OLAPARIB
     Indication: BREAST CANCER METASTATIC
     Route: 065
  7. AROMASIN [Suspect]
     Active Substance: EXEMESTANE
     Indication: PRODUCT USED FOR UNKNOWN INDICATION
     Route: 065

REACTIONS (23)
  - Drug dependence [Unknown]
  - Fatigue [Unknown]
  - Contusion [Unknown]
  - Metastases to ovary [Unknown]
  - Metastases to pelvis [Unknown]
  - Drug ineffective [Unknown]
  - Metastases to lung [Recovering/Resolving]
  - Metastases to spine [Unknown]
  - Renal failure [Unknown]
  - Feeling abnormal [Unknown]
  - Metastases to bone [Unknown]
  - Onychoclasis [Unknown]
  - Hot flush [Unknown]
  - Myalgia [Unknown]
  - Gait disturbance [Unknown]
  - Headache [Unknown]
  - Pain [Unknown]
  - Anxiety [Unknown]
  - Hormone level abnormal [Unknown]
  - Mobility decreased [Unknown]
  - Nausea [Unknown]
  - Metastases to liver [Recovered/Resolved]
  - Vomiting [Unknown]
